FAERS Safety Report 14024603 (Version 1)
Quarter: 2017Q3

REPORT INFORMATION
  Report Type: Spontaneous
  Country: US (occurrence: US)
  Receive Date: 20170928
  Receipt Date: 20170928
  Transmission Date: 20171128
  Serious: No
  Sender: FDA-Public Use
  Company Number: US-SA-2017SA015504

PATIENT
  Age: 45 Year
  Sex: Female

DRUGS (17)
  1. AUBAGIO [Suspect]
     Active Substance: TERIFLUNOMIDE
     Indication: MULTIPLE SCLEROSIS
     Route: 048
  2. EXCEDRIN [Concomitant]
     Active Substance: ACETAMINOPHEN\ASPIRIN\CAFFEINE
  3. MELATONIN [Concomitant]
     Active Substance: MELATONIN
  4. BIOTIN [Concomitant]
     Active Substance: BIOTIN
  5. NEURONTIN [Concomitant]
     Active Substance: GABAPENTIN
  6. PHENERGAN [Concomitant]
     Active Substance: PROMETHAZINE HYDROCHLORIDE
  7. IMITREX [Concomitant]
     Active Substance: SUMATRIPTAN SUCCINATE
  8. FAMOTIDINE. [Concomitant]
     Active Substance: FAMOTIDINE
  9. CYMBALTA [Concomitant]
     Active Substance: DULOXETINE HYDROCHLORIDE
  10. LEVOTHYROXINE SODIUM. [Concomitant]
     Active Substance: LEVOTHYROXINE SODIUM
  11. CLONAZEPAM. [Concomitant]
     Active Substance: CLONAZEPAM
  12. BACLOFEN. [Concomitant]
     Active Substance: BACLOFEN
  13. NUVIGIL [Concomitant]
     Active Substance: ARMODAFINIL
  14. MINERALS NOS/VITAMINS NOS [Concomitant]
  15. TIZANIDINE. [Concomitant]
     Active Substance: TIZANIDINE
  16. BENADRYL [Concomitant]
     Active Substance: DIPHENHYDRAMINE HYDROCHLORIDE
  17. VITAMIN D3 [Concomitant]
     Active Substance: CHOLECALCIFEROL

REACTIONS (4)
  - Visual impairment [Unknown]
  - Drug ineffective [Unknown]
  - Alopecia [Unknown]
  - Hypoaesthesia [Unknown]
